FAERS Safety Report 6832618-0 (Version None)
Quarter: 2010Q3

REPORT INFORMATION
  Report Type: 
  Country: None (occurrence: None)
  Receive Date: 20100712
  Receipt Date: 20070318
  Transmission Date: 20110219
  Serious: No
  Sender: FDA-Public Use
  Company Number: US-PFIZER INC-2007021428

PATIENT
  Sex: Female
  Weight: 81.65 kg

DRUGS (7)
  1. CHANTIX [Suspect]
     Indication: SMOKING CESSATION THERAPY
     Route: 048
     Dates: start: 20070312
  2. CLONAZEPAM [Concomitant]
     Route: 048
  3. LAMICTAL [Concomitant]
     Route: 048
  4. HYDROCHLOROTHIAZIDE [Concomitant]
     Indication: BLOOD PRESSURE
     Route: 048
  5. LISINOPRIL [Concomitant]
     Indication: BLOOD PRESSURE
     Route: 048
  6. LEXAPRO [Concomitant]
     Route: 048
  7. VICODIN [Concomitant]
     Indication: PAIN
     Route: 048

REACTIONS (3)
  - ARTHRALGIA [None]
  - DIARRHOEA [None]
  - SOMNOLENCE [None]
